FAERS Safety Report 5743585-5 (Version None)
Quarter: 2008Q2

REPORT INFORMATION
  Report Type: 
  Country: None (occurrence: None)
  Receive Date: 20080520
  Receipt Date: 20080512
  Transmission Date: 20081010
  Serious: Yes (Other)
  Sender: FDA-Public Use
  Company Number: PHHY2008JP08026

PATIENT
  Age: 54 Year
  Sex: Female

DRUGS (1)
  1. VOLTAREN [Suspect]
     Dosage: 37.5 MG/DAY
     Route: 048
     Dates: start: 20070601, end: 20070801

REACTIONS (1)
  - INTERSTITIAL LUNG DISEASE [None]
